FAERS Safety Report 6135523-0 (Version None)
Quarter: 2009Q1

REPORT INFORMATION
  Report Type: 
  Country: None (occurrence: None)
  Receive Date: 20090327
  Receipt Date: 20090320
  Transmission Date: 20090719
  Serious: Yes (Other)
  Sender: FDA-Public Use
  Company Number: B0566062A

PATIENT
  Sex: Male

DRUGS (5)
  1. AUGMENTIN '125' [Suspect]
     Indication: DRUG USE FOR UNKNOWN INDICATION
     Dosage: 1G TWICE PER DAY
     Route: 048
     Dates: start: 20090224, end: 20090225
  2. AIROMIR [Concomitant]
     Route: 065
  3. PREDNISOLONE [Concomitant]
     Dosage: 20MG PER DAY
     Route: 065
  4. ADVIL [Concomitant]
     Dosage: 400MG THREE TIMES PER DAY
     Route: 065
  5. PIVALONE [Concomitant]
     Route: 065

REACTIONS (3)
  - PRURITUS [None]
  - RASH [None]
  - URTICARIA [None]
